FAERS Safety Report 13467490 (Version 3)
Quarter: 2017Q2

REPORT INFORMATION
  Report Type: Spontaneous
  Country: US (occurrence: US)
  Receive Date: 20170421
  Receipt Date: 20170621
  Transmission Date: 20170830
  Serious: Yes (Life-Threatening, Hospitalization, Disabling, Other)
  Sender: FDA-Public Use
  Company Number: US-WEST-WARD PHARMACEUTICALS CORP.-2014-RO-01165RO

PATIENT
  Age: 60 Year
  Sex: Male
  Weight: 70.37 kg

DRUGS (5)
  1. ETOH [Suspect]
     Active Substance: ALCOHOL
     Indication: PRODUCT USED FOR UNKNOWN INDICATION
     Route: 065
  2. SEROQUEL [Suspect]
     Active Substance: QUETIAPINE FUMARATE
     Indication: PRODUCT USED FOR UNKNOWN INDICATION
     Route: 065
  3. OTHER ANTIDEPRESSANTS [Suspect]
     Active Substance: UNSPECIFIED INGREDIENT
     Indication: PRODUCT USED FOR UNKNOWN INDICATION
     Route: 065
  4. THC [Suspect]
     Active Substance: DRONABINOL
     Indication: PRODUCT USED FOR UNKNOWN INDICATION
     Route: 065
  5. LITHIUM CARBONATE. [Suspect]
     Active Substance: LITHIUM CARBONATE
     Indication: BIPOLAR DISORDER
     Dosage: 900 MG ONE DAY AND 1200 MG THE NEXT DAY
     Route: 048
     Dates: start: 1994, end: 201306

REACTIONS (24)
  - Renal injury [Unknown]
  - Terminal state [Unknown]
  - Arthritis [Not Recovered/Not Resolved]
  - Erectile dysfunction [Not Recovered/Not Resolved]
  - Mental disorder [Unknown]
  - Toxicity to various agents [Recovered/Resolved]
  - Parkinsonism [Recovered/Resolved]
  - Psychiatric decompensation [Unknown]
  - Cerebral disorder [Recovering/Resolving]
  - Hip deformity [Unknown]
  - Ankle fracture [Unknown]
  - Weight decreased [Recovered/Resolved]
  - Hypophagia [Recovered/Resolved]
  - Suicidal ideation [Recovered/Resolved]
  - Joint swelling [Unknown]
  - Headache [Unknown]
  - Hypersomnia [Not Recovered/Not Resolved]
  - Fall [Unknown]
  - Ejaculation failure [Not Recovered/Not Resolved]
  - Metabolic disorder [Not Recovered/Not Resolved]
  - Victim of abuse [Unknown]
  - Overdose [Unknown]
  - Hair colour changes [Recovered/Resolved]
  - Intentional product misuse [Unknown]

NARRATIVE: CASE EVENT DATE: 1999
